FAERS Safety Report 12737705 (Version 1)
Quarter: 2016Q3

REPORT INFORMATION
  Report Type: Spontaneous
  Country: US (occurrence: US)
  Receive Date: 20160912
  Receipt Date: 20160912
  Transmission Date: 20161109
  Serious: No
  Sender: FDA-Public Use
  Company Number: US-SA-2016SA117221

PATIENT
  Age: 66 Year
  Sex: Male
  Weight: 155 kg

DRUGS (9)
  1. SOLOSTAR [Concomitant]
     Active Substance: DEVICE
     Indication: TYPE 2 DIABETES MELLITUS
     Dates: start: 20150908, end: 20151117
  2. HUMALOG [Concomitant]
     Active Substance: INSULIN LISPRO
     Indication: TYPE 2 DIABETES MELLITUS
     Dosage: DOSE:10 UNIT(S)
  3. ENALAPRIL [Concomitant]
     Active Substance: ENALAPRIL
     Indication: HYPERTENSION
  4. ENALAPRIL [Concomitant]
     Active Substance: ENALAPRIL
     Indication: CARDIAC FAILURE
  5. AMIODARONE [Concomitant]
     Active Substance: AMIODARONE
     Indication: CARDIAC FAILURE
  6. FISH OIL [Concomitant]
     Active Substance: FISH OIL
     Indication: HYPERLIPIDAEMIA
  7. ENALAPRIL [Concomitant]
     Active Substance: ENALAPRIL
     Indication: DIABETES MELLITUS
  8. TOUJEO [Suspect]
     Active Substance: INSULIN GLARGINE
     Indication: TYPE 2 DIABETES MELLITUS
     Dosage: DOSE: 80 UNITS AM AND 67 UNITS HS
     Route: 065
     Dates: start: 20150908, end: 20151117
  9. ATORVASTATIN [Concomitant]
     Active Substance: ATORVASTATIN
     Indication: HYPERLIPIDAEMIA

REACTIONS (2)
  - Product use issue [Unknown]
  - Diarrhoea [Recovered/Resolved]

NARRATIVE: CASE EVENT DATE: 2015
